FAERS Safety Report 21664552 (Version 6)
Quarter: 2023Q1

REPORT INFORMATION
  Report Type: Report from Study
  Country: ES (occurrence: ES)
  Receive Date: 20221130
  Receipt Date: 20230119
  Transmission Date: 20230418
  Serious: Yes (Hospitalization)
  Sender: FDA-Public Use
  Company Number: ES-009507513-2211ESP007121

PATIENT
  Age: 71 Year
  Sex: Female
  Weight: 51.4 kg

DRUGS (37)
  1. GEMCITABINE HYDROCHLORIDE [Suspect]
     Active Substance: GEMCITABINE HYDROCHLORIDE
     Indication: Ductal adenocarcinoma of pancreas
     Dosage: TWICE EVERY 3 WEEKS
     Route: 042
     Dates: start: 20220818, end: 20220818
  2. GEMCITABINE HYDROCHLORIDE [Suspect]
     Active Substance: GEMCITABINE HYDROCHLORIDE
     Dosage: TWICE EVERY 3 WEEKS
     Route: 042
     Dates: start: 20220825, end: 20220927
  3. GEMCITABINE HYDROCHLORIDE [Suspect]
     Active Substance: GEMCITABINE HYDROCHLORIDE
     Dosage: TWICE EVERY 3 WEEKS
     Route: 042
     Dates: start: 20221004, end: 20221018
  4. PEMBROLIZUMAB [Suspect]
     Active Substance: PEMBROLIZUMAB
     Indication: Ductal adenocarcinoma of pancreas
     Dosage: 200 MILLIGRAM, Q3W; INFUSION
     Route: 042
     Dates: start: 20220818, end: 20220818
  5. PEMBROLIZUMAB [Suspect]
     Active Substance: PEMBROLIZUMAB
     Dosage: 200 MILLIGRAM, Q3W; INFUSION
     Route: 042
     Dates: start: 20221018, end: 20221018
  6. PACLITAXEL [Suspect]
     Active Substance: PACLITAXEL
     Indication: Ductal adenocarcinoma of pancreas
     Dosage: TWICE EVERY 3 WEEKS (2Q3W)
     Route: 042
     Dates: start: 20220818, end: 20220818
  7. PACLITAXEL [Suspect]
     Active Substance: PACLITAXEL
     Dosage: TWICE EVERY 3 WEEKS (2Q3W)
     Route: 042
     Dates: start: 20220825, end: 20220825
  8. PACLITAXEL [Suspect]
     Active Substance: PACLITAXEL
     Dosage: TWICE EVERY 3 WEEKS (2Q3W)
     Route: 042
     Dates: start: 20220915, end: 20220927
  9. PACLITAXEL [Suspect]
     Active Substance: PACLITAXEL
     Dosage: TWICE EVERY 3 WEEKS (2Q3W)
     Route: 042
     Dates: start: 20221004, end: 20221018
  10. PACLITAXEL [Suspect]
     Active Substance: PACLITAXEL
     Dosage: TWICE EVERY 3 WEEKS (2Q3W)
     Route: 042
     Dates: start: 20220825, end: 20220927
  11. ENTRESTO [Concomitant]
     Active Substance: SACUBITRIL\VALSARTAN
     Dosage: UNK
     Route: 048
  12. ENTRESTO [Concomitant]
     Active Substance: SACUBITRIL\VALSARTAN
     Dosage: UNK
     Dates: start: 20221111
  13. ENTRESTO [Concomitant]
     Active Substance: SACUBITRIL\VALSARTAN
     Dosage: UNK
     Route: 048
  14. ENTRESTO [Concomitant]
     Active Substance: SACUBITRIL\VALSARTAN
     Dosage: UNK
     Route: 048
     Dates: start: 2002
  15. METHYLPREDNISOLONE [Concomitant]
     Active Substance: METHYLPREDNISOLONE
     Dosage: UNK
     Dates: start: 20220902
  16. METHYLPREDNISOLONE [Concomitant]
     Active Substance: METHYLPREDNISOLONE
     Dosage: UNK
     Dates: start: 20221011, end: 20221125
  17. EPLERENONE [Concomitant]
     Active Substance: EPLERENONE
     Dosage: UNK
     Dates: start: 202106, end: 20221110
  18. LANTUS [Concomitant]
     Active Substance: INSULIN GLARGINE
     Dosage: UNK
     Dates: start: 20220921, end: 20221110
  19. REPAGLINIDE [Concomitant]
     Active Substance: REPAGLINIDE
     Dosage: UNK
     Dates: start: 20220921, end: 20221011
  20. EDOXABAN TOSYLATE [Concomitant]
     Active Substance: EDOXABAN TOSYLATE
     Dosage: UNK
     Dates: start: 202106, end: 20221110
  21. PANCRELIPASE [Concomitant]
     Active Substance: PANCRELIPASE
     Dosage: UNK
     Dates: start: 202106
  22. OMEPRAZOLE [Concomitant]
     Active Substance: OMEPRAZOLE
     Dosage: UNK
     Dates: start: 2013, end: 20221110
  23. ALPRAZOLAM [Concomitant]
     Active Substance: ALPRAZOLAM
     Dosage: UNK
     Dates: start: 202106, end: 20221110
  24. CARVEDILOL [Concomitant]
     Active Substance: CARVEDILOL
     Dosage: UNK
     Dates: start: 2022
  25. PANTOPRAZOLE [Concomitant]
     Active Substance: PANTOPRAZOLE
     Dosage: UNK
     Dates: start: 20221111
  26. HIBOR [Concomitant]
     Dosage: UNK
     Dates: start: 20221111
  27. METOCLOPRAMIDE HYDROCHLORIDE [Concomitant]
     Active Substance: METOCLOPRAMIDE HYDROCHLORIDE
     Dosage: UNK
     Dates: start: 20221117
  28. FOLIC ACID [Concomitant]
     Active Substance: FOLIC ACID
     Dosage: UNK
     Dates: start: 20221115
  29. CASPOFUNGINA [CASPOFUNGIN] [Concomitant]
     Dosage: UNK
     Dates: start: 20221117
  30. DIBEN DRINK [Concomitant]
     Dosage: UNK
     Dates: start: 20221116
  31. SULFAMETHOXAZOLE\TRIMETHOPRIM [Concomitant]
     Active Substance: SULFAMETHOXAZOLE\TRIMETHOPRIM
     Dosage: UNK
     Dates: start: 20221111, end: 20221117
  32. CLINDAMYCIN [Concomitant]
     Active Substance: CLINDAMYCIN
     Dosage: UNK
     Dates: start: 20221117
  33. NYSTATIN [Concomitant]
     Active Substance: NYSTATIN
     Dosage: UNK
     Dates: start: 20221118
  34. OMEPRAZOLE [Concomitant]
     Active Substance: OMEPRAZOLE
     Dosage: UNK
     Dates: start: 2013
  35. OMEPRAZOLE [Concomitant]
     Active Substance: OMEPRAZOLE
     Dosage: UNK
     Dates: end: 20221110
  36. ACETAMINOPHEN [Concomitant]
     Active Substance: ACETAMINOPHEN
     Dosage: UNK
     Dates: start: 20221021, end: 20221110
  37. METOCLOPRAMIDE [Concomitant]
     Active Substance: METOCLOPRAMIDE
     Dosage: UNK
     Dates: start: 20221117

REACTIONS (1)
  - Pneumonia [Recovered/Resolved]

NARRATIVE: CASE EVENT DATE: 20221110
